FAERS Safety Report 15348453 (Version 1)
Quarter: 2018Q3

REPORT INFORMATION
  Report Type: Spontaneous
  Country: US (occurrence: US)
  Receive Date: 20180904
  Receipt Date: 20180904
  Transmission Date: 20181010
  Serious: No
  Sender: FDA-Public Use
  Company Number: US-009507513-1808USA007614

PATIENT
  Age: 45 Year
  Sex: Female

DRUGS (6)
  1. HEPARIN [Concomitant]
     Active Substance: HEPARIN SODIUM
     Dosage: 70 IU/KG, UNK
     Route: 040
  2. GENERAL ANESTHESIA (UNSPECIFIED) [Concomitant]
     Active Substance: UNSPECIFIED INGREDIENT
     Indication: GENERAL ANAESTHESIA
  3. INTEGRILIN [Suspect]
     Active Substance: EPTIFIBATIDE
     Dosage: 2 MICROGRAM PER KILOGRAM/MIN, DURING 10 MINUTES
     Route: 042
  4. INTEGRILIN [Suspect]
     Active Substance: EPTIFIBATIDE
     Indication: STENT PLACEMENT
     Dosage: 180 MICROGRAM PER KILOGRAM, ONCE
     Route: 042
  5. ASPIRIN. [Concomitant]
     Active Substance: ASPIRIN
     Dosage: 650 MG, ONCE, VIA NASOGASTRIC TUBE
     Route: 050
  6. TICAGRELOR. [Concomitant]
     Active Substance: TICAGRELOR
     Dosage: 18 MG, ONCE, VIA NASOGASTRIC TUBE
     Route: 050

REACTIONS (1)
  - Product use in unapproved indication [Unknown]
